FAERS Safety Report 9468698 (Version 1)
Quarter: 2013Q3

REPORT INFORMATION
  Report Type: Spontaneous
  Country: US (occurrence: US)
  Receive Date: 20130821
  Receipt Date: 20130821
  Transmission Date: 20140515
  Serious: Yes (Other)
  Sender: FDA-Public Use
  Company Number: US-MYLANLABS-2013S1017923

PATIENT
  Age: 45 Year
  Sex: Male

DRUGS (10)
  1. PAROXETINE [Suspect]
     Indication: MAJOR DEPRESSION
     Dosage: 12.5MG DAILY EXTENDED-RELEASE; INCREASED TO 25MG DAILY
     Route: 065
  2. PAROXETINE [Interacting]
     Indication: MAJOR DEPRESSION
     Dosage: 25MG DAILY EXTENDED-RELEASE; INCREASED TO 37.5MG DAILY
     Route: 065
  3. PAROXETINE [Interacting]
     Indication: MAJOR DEPRESSION
     Dosage: 37.5MG DAILY EXTENDED-RELEASE
     Route: 065
  4. ZOLPIDEM [Interacting]
     Indication: MAJOR DEPRESSION
     Dosage: 10MG AT NIGHT TIME; THEN 20MG IN THE HOURS BEFORE HOMICIDE
     Route: 048
  5. ZOLPIDEM [Interacting]
     Indication: INSOMNIA
     Dosage: 10MG AT NIGHT TIME; THEN 20MG IN THE HOURS BEFORE HOMICIDE
     Route: 048
  6. ZOLPIDEM [Interacting]
     Indication: MAJOR DEPRESSION
     Dosage: USUAL NIGHTTIME 10MG, THEN EXTRA PILL AT 1:30AM (20MG INGESTED)
     Route: 048
  7. ZOLPIDEM [Interacting]
     Indication: INSOMNIA
     Dosage: USUAL NIGHTTIME 10MG, THEN EXTRA PILL AT 1:30AM (20MG INGESTED)
     Route: 048
  8. LORAZEPAM [Concomitant]
     Indication: MAJOR DEPRESSION
     Dosage: AS NEEDED
     Route: 065
  9. QUETIAPINE [Concomitant]
     Indication: MAJOR DEPRESSION
     Dosage: 25MG DAILY; INCREASED TO 100MG
     Route: 065
  10. QUETIAPINE [Concomitant]
     Indication: MAJOR DEPRESSION
     Dosage: 100MG
     Route: 065

REACTIONS (5)
  - Aggression [Unknown]
  - Amnesia [Unknown]
  - Homicide [Unknown]
  - Drug interaction [Unknown]
  - Extra dose administered [Unknown]
